FAERS Safety Report 14185007 (Version 2)
Quarter: 2018Q3

REPORT INFORMATION
  Report Type: Spontaneous
  Country: US (occurrence: US)
  Receive Date: 20171113
  Receipt Date: 20180906
  Transmission Date: 20181010
  Serious: Yes (Hospitalization, Other)
  Sender: FDA-Public Use
  Company Number: US-JAZZ-2017-US-014811

PATIENT
  Age: 58 Year
  Sex: Female

DRUGS (2)
  1. XYREM [Suspect]
     Active Substance: SODIUM OXYBATE
     Dosage: 3.5 ML OF 500 MG/ML
     Route: 048
     Dates: start: 2017
  2. XYREM [Suspect]
     Active Substance: SODIUM OXYBATE
     Indication: NARCOLEPSY
     Dosage: UNK
     Route: 048

REACTIONS (6)
  - Anxiety [Unknown]
  - Irritability [Recovered/Resolved]
  - Seizure [Unknown]
  - Agitation [Recovered/Resolved]
  - Confusional state [Recovered/Resolved]
  - Pain [Unknown]

NARRATIVE: CASE EVENT DATE: 2017
